FAERS Safety Report 17689349 (Version 2)
Quarter: 2020Q3

REPORT INFORMATION
  Report Type: Spontaneous
  Country: DE (occurrence: DE)
  Receive Date: 20200421
  Receipt Date: 20200724
  Transmission Date: 20201102
  Serious: Yes (Other)
  Sender: FDA-Public Use
  Company Number: DE-HIKMA PHARMACEUTICALS USA INC.-DE-H14001-20-51122

PATIENT
  Age: 73 Year
  Sex: Female

DRUGS (4)
  1. MONO?EMBOLEX MULTI [Suspect]
     Active Substance: CERTOPARIN SODIUM
     Indication: ATRIAL FIBRILLATION
     Route: 065
     Dates: start: 20101001, end: 20101008
  2. CIPROFLOXACIN. [Suspect]
     Active Substance: CIPROFLOXACIN
     Indication: PRODUCT USED FOR UNKNOWN INDICATION
     Dosage: UNKNOWN
     Route: 065
  3. ACETYLSALICYLIC ACID [Suspect]
     Active Substance: ASPIRIN
     Indication: ISCHAEMIC HEART DISEASE PROPHYLAXIS
     Dosage: UNKNOWN
     Route: 065
     Dates: start: 2013
  4. PRASUGREL. [Suspect]
     Active Substance: PRASUGREL
     Indication: PRODUCT USED FOR UNKNOWN INDICATION
     Dosage: UNKNOWN
     Route: 065

REACTIONS (16)
  - Myocardial infarction [Unknown]
  - Urinary bladder haemorrhage [Unknown]
  - Gingival bleeding [Unknown]
  - Factor V inhibition [Unknown]
  - Prothrombin time prolonged [Unknown]
  - Eye haemorrhage [Unknown]
  - Coagulation factor V level decreased [Unknown]
  - Laboratory test abnormal [Unknown]
  - Prothrombin time shortened [Unknown]
  - Haemorrhage [Unknown]
  - Off label use [Unknown]
  - Epistaxis [Unknown]
  - Haematoma [Unknown]
  - Muscle rupture [Unknown]
  - Activated partial thromboplastin time prolonged [Unknown]
  - Thrombosis [Unknown]

NARRATIVE: CASE EVENT DATE: 20101117
